FAERS Safety Report 9537133 (Version 2)
Quarter: 2013Q3

REPORT INFORMATION
  Report Type: Spontaneous
  Country: US (occurrence: US)
  Receive Date: 20130919
  Receipt Date: 20130930
  Transmission Date: 20140515
  Serious: Yes (Hospitalization)
  Sender: FDA-Public Use
  Company Number: US-GILEAD-2013-0083699

PATIENT
  Age: 19 Year
  Sex: Female

DRUGS (4)
  1. LETAIRIS [Suspect]
     Indication: PULMONARY ARTERIAL HYPERTENSION
     Dosage: 10 MG, QD
     Dates: start: 20111105
  2. LETAIRIS [Suspect]
     Indication: PREMATURE BABY
  3. LETAIRIS [Suspect]
     Indication: PATENT DUCTUS ARTERIOSUS
  4. REMODULIN [Concomitant]
     Indication: PULMONARY ARTERIAL HYPERTENSION

REACTIONS (1)
  - Catheter site pain [Not Recovered/Not Resolved]
